FAERS Safety Report 6051343-X (Version None)
Quarter: 2009Q1

REPORT INFORMATION
  Report Type: 
  Country: None (occurrence: None)
  Receive Date: 20090121
  Receipt Date: 20090107
  Transmission Date: 20090719
  Serious: No
  Sender: FDA-Public Use
  Company Number: 2009AL000099

PATIENT
  Age: 59 Year
  Sex: Male

DRUGS (5)
  1. IRINOTECAN HCL [Suspect]
     Indication: RECTAL CANCER METASTATIC
  2. BEVACIZUMAB [Concomitant]
  3. FOLINIC ACID [Concomitant]
  4. FLUOROURACIL [Concomitant]
  5. CAPECITABINE [Concomitant]

REACTIONS (6)
  - ANASTOMOTIC LEAK [None]
  - CATHETER RELATED INFECTION [None]
  - DEVICE MIGRATION [None]
  - INTESTINAL OBSTRUCTION [None]
  - PERITONITIS [None]
  - PROCEDURAL PAIN [None]
